FAERS Safety Report 4486577-9 (Version None)
Quarter: 2004Q4

REPORT INFORMATION
  Report Type: 
  Country: None (occurrence: None)
  Receive Date: 20041021
  Receipt Date: 20041005
  Transmission Date: 20050328
  Serious: Yes (Death, Other)
  Sender: FDA-Public Use
  Company Number: 2004237706JP

PATIENT
  Age: 34 Year
  Sex: Female

DRUGS (1)
  1. DELTA-CORTEF [Suspect]
     Dosage: 50 MG, QD, IV
     Route: 042

REACTIONS (2)
  - ABORTION SPONTANEOUS [None]
  - DRUG EXPOSURE DURING PREGNANCY [None]
